FAERS Safety Report 21062709 (Version 3)
Quarter: 2022Q3

REPORT INFORMATION
  Report Type: Report from Study
  Country: JP (occurrence: JP)
  Receive Date: 20220711
  Receipt Date: 20220718
  Transmission Date: 20221026
  Serious: Yes (Death, Hospitalization)
  Sender: FDA-Public Use
  Company Number: JP-BRISTOL-MYERS SQUIBB COMPANY-2022-031060

PATIENT
  Sex: Male
  Weight: 57.9 kg

DRUGS (9)
  1. NIVOLUMAB [Suspect]
     Active Substance: NIVOLUMAB
     Indication: Gastrooesophageal cancer
     Route: 042
     Dates: start: 20220330, end: 20220413
  2. REGORAFENIB [Suspect]
     Active Substance: REGORAFENIB
     Indication: Gastrooesophageal cancer
     Route: 048
     Dates: start: 20220330, end: 20220419
  3. AMLODIPINE BESYLATE [Concomitant]
     Active Substance: AMLODIPINE BESYLATE
     Indication: Product used for unknown indication
     Route: 048
     Dates: start: 20201104
  4. OLMESARTAN MEDOXOMIL [Concomitant]
     Active Substance: OLMESARTAN MEDOXOMIL
     Indication: Product used for unknown indication
     Route: 048
     Dates: start: 20201029
  5. CLOPIDOGREL BISULFATE [Concomitant]
     Active Substance: CLOPIDOGREL BISULFATE
     Indication: Product used for unknown indication
     Route: 048
     Dates: start: 20201124
  6. METFORMIN HYDROCHLORIDE [Concomitant]
     Active Substance: METFORMIN HYDROCHLORIDE
     Indication: Product used for unknown indication
     Route: 048
     Dates: start: 20201123
  7. MAGNESIUM OXIDE [Concomitant]
     Active Substance: MAGNESIUM OXIDE
     Indication: Product used for unknown indication
     Dosage: FREQUENCY: 3 UNITS IN 1 DAY
     Route: 048
     Dates: start: 20201101
  8. ACETAMINOPHEN [Concomitant]
     Active Substance: ACETAMINOPHEN
     Indication: Product used for unknown indication
     Dosage: PRN
     Route: 048
     Dates: start: 20201129
  9. KETOPROFEN [Concomitant]
     Active Substance: KETOPROFEN
     Indication: Product used for unknown indication
     Dosage: SHEET
     Route: 062
     Dates: start: 20220330

REACTIONS (2)
  - Aspartate aminotransferase increased [Fatal]
  - Alanine aminotransferase increased [Fatal]

NARRATIVE: CASE EVENT DATE: 20220427
